FAERS Safety Report 10020898 (Version 1)
Quarter: 2014Q1

REPORT INFORMATION
  Report Type: Spontaneous
  Country: US (occurrence: None)
  Receive Date: 20140318
  Receipt Date: 20140318
  Transmission Date: 20141002
  Serious: Yes (Death)
  Sender: FDA-Public Use
  Company Number: None

PATIENT
  Age: 82 Year
  Sex: Male
  Weight: 52.3 kg

DRUGS (1)
  1. EXJADE 500MG NOVARTIS [Suspect]
     Indication: IRON OVERLOAD
     Route: 048
     Dates: start: 201205, end: 201402

REACTIONS (3)
  - Rectal haemorrhage [None]
  - Gastric ulcer haemorrhage [None]
  - Organ failure [None]
